FAERS Safety Report 12952782 (Version 1)
Quarter: 2016Q4

REPORT INFORMATION
  Report Type: Spontaneous
  Country: US (occurrence: US)
  Receive Date: 20161117
  Receipt Date: 20161117
  Transmission Date: 20170207
  Serious: Yes (Other)
  Sender: FDA-Public Use
  Company Number: US-NOVOPROD-507342

PATIENT
  Age: 62 Year
  Sex: Male
  Weight: 103.86 kg

DRUGS (9)
  1. NOVOLOG [Suspect]
     Active Substance: INSULIN ASPART
     Indication: TYPE 2 DIABETES MELLITUS
     Dosage: CARBOHYDRATE COVERAGE WITH MEALS, 1 UNIT FOR EVERY 5 CARBS EATEN
     Route: 058
     Dates: start: 20160720
  2. AMLODIPINE BENAZEPRIL [Concomitant]
     Active Substance: AMLODIPINE BESYLATE\BENAZEPRIL HYDROCHLORIDE
     Indication: PRODUCT USED FOR UNKNOWN INDICATION
     Dosage: 10/20 MG DAILY
     Route: 048
  3. ATORVASTATIN [Concomitant]
     Active Substance: ATORVASTATIN
     Indication: PRODUCT USED FOR UNKNOWN INDICATION
     Dosage: 80 MG, QD AT BEDTIME
     Route: 048
  4. COQ 10 [Concomitant]
     Active Substance: UBIDECARENONE
     Indication: PRODUCT USED FOR UNKNOWN INDICATION
     Dosage: 100 MG AS DIRECTED
     Route: 048
  5. GLUCAGON EMERGENCY KIT [Concomitant]
     Active Substance: GLUCAGON
     Indication: HYPOGLYCAEMIA
     Dosage: 1 MG, USE AS DIRECTED WHEN HAVING HYPOGLYCEMIA AND PATIENT UNABLE TO TREAT SELF
  6. ASPIRIN 81 [Concomitant]
     Active Substance: ASPIRIN
     Indication: PRODUCT USED FOR UNKNOWN INDICATION
     Dosage: 81 MG, QD AS DIRECTED
     Route: 048
  7. NOVOLOG [Suspect]
     Active Substance: INSULIN ASPART
     Dosage: CARBOHYDRATE COVERAGE WITH MEALS, 1 UNIT FOR EVERY 5 CARBS EATEN
     Route: 058
  8. LANTUS [Concomitant]
     Active Substance: INSULIN GLARGINE
     Indication: TYPE 2 DIABETES MELLITUS
     Dosage: 24U QAM + 22U HS, UP TO 50U
     Route: 058
  9. PROBIOTIC                          /08023301/ [Concomitant]
     Indication: PRODUCT USED FOR UNKNOWN INDICATION
     Dosage: UNK
     Route: 048

REACTIONS (6)
  - Diabetes mellitus inadequate control [Recovered/Resolved]
  - Aggression [Recovered/Resolved]
  - Stress [Unknown]
  - Glycosylated haemoglobin increased [Unknown]
  - Product quality issue [Recovered/Resolved]
  - Agitation [Recovered/Resolved]

NARRATIVE: CASE EVENT DATE: 2016
